FAERS Safety Report 4663691-6 (Version None)
Quarter: 2005Q2

REPORT INFORMATION
  Report Type: 
  Country: None (occurrence: None)
  Receive Date: 20050517
  Receipt Date: 20050510
  Transmission Date: 20051028
  Serious: Yes (Other)
  Sender: FDA-Public Use
  Company Number: 004807

PATIENT
  Age: 59 Year
  Sex: Female

DRUGS (3)
  1. MEDROXYPROGESTERONE ACETATE [Suspect]
     Dates: start: 19900101, end: 20030501
  2. PROVERA [Concomitant]
     Dates: start: 19900101, end: 20030501
  3. PREMARIN [Suspect]
     Dates: start: 19900101, end: 20030501

REACTIONS (1)
  - OVARIAN CANCER [None]
